FAERS Safety Report 18131504 (Version 1)
Quarter: 2020Q3

REPORT INFORMATION
  Report Type: Spontaneous
  Country: US (occurrence: US)
  Receive Date: 20200810
  Receipt Date: 20200810
  Transmission Date: 20201103
  Serious: Yes (Hospitalization)
  Sender: FDA-Public Use
  Company Number: US-STRONGBRIDGE BIOPHARMA-2020-STR-000190

PATIENT
  Age: 26 Year
  Sex: Female

DRUGS (1)
  1. KEVEYIS [Suspect]
     Active Substance: DICHLORPHENAMIDE
     Indication: FAMILIAL PERIODIC PARALYSIS
     Dosage: 12.5 MG, QD
     Route: 048

REACTIONS (3)
  - Underdose [Unknown]
  - Wrong technique in product usage process [Unknown]
  - Hypokalaemia [Unknown]

NARRATIVE: CASE EVENT DATE: 20200709
